FAERS Safety Report 7715176-8 (Version None)
Quarter: 2011Q3

REPORT INFORMATION
  Report Type: 
  Country: None (occurrence: None)
  Receive Date: 20110829
  Receipt Date: 20110819
  Transmission Date: 20111222
  Serious: Yes (Other)
  Sender: FDA-Public Use
  Company Number: PHFR2011GB01395

PATIENT
  Sex: Male
  Weight: 131 kg

DRUGS (3)
  1. PIRENZEPINE [Concomitant]
     Dosage: 75 MG, UNK
     Route: 048
  2. CLOZAPINE [Suspect]
     Indication: SCHIZOPHRENIA
     Route: 048
     Dates: start: 20101220
  3. CITALOPRAM HYDROBROMIDE [Concomitant]
     Dosage: 40 MG, UNK
     Route: 048

REACTIONS (2)
  - HAEMATURIA [None]
  - TUBULOINTERSTITIAL NEPHRITIS [None]
